FAERS Safety Report 23420037 (Version 2)
Quarter: 2024Q2

REPORT INFORMATION
  Report Type: Spontaneous
  Country: US (occurrence: US)
  Receive Date: 20240119
  Receipt Date: 20240506
  Transmission Date: 20240716
  Serious: Yes (Other)
  Sender: FDA-Public Use
  Company Number: US-Blueprint Medicines Corporation-1977

PATIENT
  Age: 81 Year
  Sex: Male

DRUGS (2)
  1. AYVAKIT [Suspect]
     Active Substance: AVAPRITINIB
     Indication: Advanced systemic mastocytosis
     Route: 065
  2. AYVAKIT [Suspect]
     Active Substance: AVAPRITINIB
     Route: 065

REACTIONS (5)
  - Prostate cancer [Unknown]
  - Skin cancer [Unknown]
  - Back pain [Unknown]
  - Pain [Unknown]
  - Loss of personal independence in daily activities [Unknown]

NARRATIVE: CASE EVENT DATE: 20230101
